FAERS Safety Report 18777227 (Version 4)
Quarter: 2025Q1

REPORT INFORMATION
  Report Type: Spontaneous
  Country: ES (occurrence: ES)
  Receive Date: 20210123
  Receipt Date: 20250319
  Transmission Date: 20250408
  Serious: Yes (Death, Life-Threatening, Hospitalization, Disabling, Other)
  Sender: TAKEDA
  Company Number: ES-BAXTER-2020BAX021863

PATIENT
  Age: 75 Year
  Sex: Male
  Weight: 86.4 kg

DRUGS (31)
  1. ALBUMIN HUMAN [Suspect]
     Active Substance: ALBUMIN HUMAN
     Indication: Product used for unknown indication
  2. HYDROCORTISONE [Suspect]
     Active Substance: HYDROCORTISONE
     Indication: Product used for unknown indication
  3. FENTANYL [Suspect]
     Active Substance: FENTANYL
     Indication: Product used for unknown indication
  4. MIDAZOLAM HYDROCHLORIDE [Suspect]
     Active Substance: MIDAZOLAM HYDROCHLORIDE
     Indication: Product used for unknown indication
  5. METHOTREXATE [Suspect]
     Active Substance: METHOTREXATE
     Indication: Product used for unknown indication
  6. ACETAMINOPHEN [Suspect]
     Active Substance: ACETAMINOPHEN
     Indication: Product used for unknown indication
  7. MAGNESIUM [Suspect]
     Active Substance: MAGNESIUM
     Indication: Product used for unknown indication
  8. CISATRACURIUM BESYLATE [Suspect]
     Active Substance: CISATRACURIUM BESYLATE
     Indication: Product used for unknown indication
  9. ENOXAPARIN SODIUM [Suspect]
     Active Substance: ENOXAPARIN SODIUM
     Indication: Product used for unknown indication
  10. AMIODARONE [Suspect]
     Active Substance: AMIODARONE
     Indication: Product used for unknown indication
     Dates: start: 20200823, end: 20200823
  11. FUROSEMIDE [Suspect]
     Active Substance: FUROSEMIDE
     Indication: Product used for unknown indication
     Dates: start: 20200821, end: 20200824
  12. CALCIUM GLUCONATE [Suspect]
     Active Substance: CALCIUM GLUCONATE
     Indication: Product used for unknown indication
  13. INSULIN GLARGINE [Suspect]
     Active Substance: INSULIN GLARGINE
     Indication: Product used for unknown indication
  14. PROPOFOL [Suspect]
     Active Substance: PROPOFOL
     Indication: Product used for unknown indication
  15. PLASMA-LYTE 148 [Suspect]
     Active Substance: MAGNESIUM CHLORIDE\POTASSIUM CHLORIDE\SODIUM ACETATE\SODIUM CHLORIDE\SODIUM GLUCONATE
     Indication: Product used for unknown indication
     Dates: start: 20200823, end: 20200823
  16. PROPOFOL [Suspect]
     Active Substance: PROPOFOL
     Indication: Product used for unknown indication
  17. CISATRACURIUM [Suspect]
     Active Substance: CISATRACURIUM
     Indication: Product used for unknown indication
  18. OMEPRAZOLE [Suspect]
     Active Substance: OMEPRAZOLE
     Indication: Product used for unknown indication
  19. INSULIN NOS [Suspect]
     Active Substance: INSULIN NOS
     Indication: Product used for unknown indication
     Dates: start: 20200810, end: 20200811
  20. HALOPERIDOL [Concomitant]
     Active Substance: HALOPERIDOL
     Indication: Product used for unknown indication
     Dates: start: 20200812, end: 20200812
  21. CAPTOPRIL [Concomitant]
     Active Substance: CAPTOPRIL
     Indication: Product used for unknown indication
     Dates: start: 20200808, end: 20200810
  22. DEXAMETHASONE [Concomitant]
     Active Substance: DEXAMETHASONE
     Indication: Product used for unknown indication
     Dates: start: 20200810, end: 20200811
  23. PARAFFIN [Concomitant]
     Active Substance: PARAFFIN
     Indication: Product used for unknown indication
     Dates: start: 20200811, end: 20200819
  24. ENOXAPARIN [Concomitant]
     Active Substance: ENOXAPARIN
     Indication: Product used for unknown indication
     Dates: start: 20200810, end: 20200814
  25. BEMIPARIN [Concomitant]
     Active Substance: BEMIPARIN
     Indication: Product used for unknown indication
     Dates: start: 20200808, end: 20200811
  26. QUETIAPINE [Concomitant]
     Active Substance: QUETIAPINE
     Indication: Product used for unknown indication
     Dates: start: 20200818, end: 20200818
  27. AMLODIPINE [Concomitant]
     Active Substance: AMLODIPINE BESYLATE
     Indication: Product used for unknown indication
     Dates: start: 20200810, end: 20200811
  28. MELATONIN [Concomitant]
     Active Substance: MELATONIN
     Indication: Product used for unknown indication
     Dates: start: 20200814, end: 20200818
  29. ACETYLCYSTEINE [Concomitant]
     Active Substance: ACETYLCYSTEINE
     Indication: Product used for unknown indication
     Dates: start: 20200811, end: 20200817
  30. CEFTRIAXONE [Concomitant]
     Active Substance: CEFTRIAXONE
     Indication: Product used for unknown indication
     Dates: start: 20200810, end: 20200813
  31. INSULIN PORK\INSULIN PURIFIED PORK [Concomitant]
     Active Substance: INSULIN PORK\INSULIN PURIFIED PORK
     Indication: Product used for unknown indication
     Dates: start: 20200808, end: 20200810

REACTIONS (5)
  - Hypoxia [Fatal]
  - Hypokalaemia [Fatal]
  - Klebsiella infection [Fatal]
  - Cyanosis [Fatal]
  - Hyponatraemia [Fatal]

NARRATIVE: CASE EVENT DATE: 20200823
